FAERS Safety Report 8906130 (Version 2)
Quarter: 2013Q1

REPORT INFORMATION
  Report Type: Spontaneous
  Country: FR (occurrence: None)
  Receive Date: 20121102
  Receipt Date: 20121102
  Transmission Date: 20140127
  Serious: Yes (Other)
  Sender: FDA-Public Use
  Company Number: 200814214

PATIENT
  Age: 9 Year
  Sex: Male

DRUGS (2)
  1. HAEMATE P [Suspect]
     Indication: IMMUNOSUPPRESSANT DRUG THERAPY
     Dosage: 2000 IU ONCE, INTRAVENOUS (NOT OTHERWISE SPECIFIED)
     Route: 042
     Dates: start: 20081022
  2. HAEMATE P [Suspect]
     Indication: HAEMOPHILIA A WITH ANTI FACTOR VIII
     Dosage: 2000 IU ONCE, INTRAVENOUS (NOT OTHERWISE SPECIFIED)
     Route: 042
     Dates: start: 20081022

REACTIONS (7)
  - Drug ineffective [None]
  - Paraesthesia [None]
  - Paraesthesia oral [None]
  - Tremor [None]
  - Tremor [None]
  - Drug hypersensitivity [None]
  - Infusion related reaction [None]
